FAERS Safety Report 9681741 (Version 1)
Quarter: 2013Q4

REPORT INFORMATION
  Report Type: Spontaneous
  Country: CH (occurrence: CH)
  Receive Date: 20131111
  Receipt Date: 20131111
  Transmission Date: 20140711
  Serious: Yes (Death, Hospitalization)
  Sender: FDA-Public Use
  Company Number: CH-GLAXOSMITHKLINE-B0939977A

PATIENT
  Age: 90 Year
  Sex: Male
  Weight: 53.7 kg

DRUGS (5)
  1. ARIXTRA [Suspect]
     Indication: ARRHYTHMIA SUPRAVENTRICULAR
     Dosage: 2.5MG PER DAY
     Route: 058
     Dates: start: 20130410, end: 20130415
  2. COLESTYRAMINE [Suspect]
     Indication: HYPERCHOLESTEROLAEMIA
     Route: 048
  3. UNKNOWN MEDICATION [Concomitant]
     Indication: PRODUCT USED FOR UNKNOWN INDICATION
     Route: 031
  4. SINTROM [Concomitant]
     Indication: ATRIAL FIBRILLATION
     Dates: end: 20130406
  5. CLEXANE [Concomitant]
     Dates: start: 20130407

REACTIONS (2)
  - Gastrointestinal haemorrhage [Recovered/Resolved]
  - Death [Fatal]
